FAERS Safety Report 8221392-1 (Version None)
Quarter: 2012Q1

REPORT INFORMATION
  Report Type: 
  Country: None (occurrence: None)
  Receive Date: 20120320
  Receipt Date: 20120319
  Transmission Date: 20120608
  Serious: Yes (Death)
  Sender: FDA-Public Use
  Company Number: PHFR2012GB001241

PATIENT
  Sex: Male

DRUGS (2)
  1. MIRTAZAPINE [Concomitant]
     Indication: DEPRESSIVE SYMPTOM
     Dosage: 30 MG, DAILY
     Route: 048
  2. CLOZARIL [Suspect]
     Indication: SCHIZOPHRENIA
     Dosage: 350 MG, DAILY
     Route: 048
     Dates: start: 20010213

REACTIONS (1)
  - DEATH [None]
